FAERS Safety Report 7323269-2 (Version None)
Quarter: 2011Q1

REPORT INFORMATION
  Report Type: 
  Country: None (occurrence: None)
  Receive Date: 20110301
  Receipt Date: 20110215
  Transmission Date: 20110831
  Serious: Yes (Hospitalization)
  Sender: FDA-Public Use
  Company Number: US-SANOFI-AVENTIS-2011SA009987

PATIENT
  Age: 57 Year
  Sex: Female

DRUGS (14)
  1. PRAVACHOL [Concomitant]
  2. LYRICA [Concomitant]
  3. FLEXERIL [Concomitant]
  4. KLOR-CON [Concomitant]
  5. LEVAQUIN [Concomitant]
  6. MULTAQ [Suspect]
     Indication: ARRHYTHMIA
     Route: 048
     Dates: start: 20091201
  7. ASPIRIN [Concomitant]
  8. SYNTHROID [Concomitant]
  9. LASIX [Concomitant]
  10. LOPRESSOR [Concomitant]
  11. WARFARIN [Suspect]
     Indication: ATRIAL FIBRILLATION
     Route: 065
     Dates: end: 20110201
  12. TRAMADOL HCL [Concomitant]
  13. MULTAQ [Suspect]
     Indication: ATRIAL FIBRILLATION
     Route: 048
     Dates: start: 20091201
  14. DABIGATRAN ETEXILATE [Concomitant]

REACTIONS (3)
  - INTERNATIONAL NORMALISED RATIO INCREASED [None]
  - LETHARGY [None]
  - PULMONARY HAEMORRHAGE [None]
